FAERS Safety Report 6740756-6 (Version None)
Quarter: 2010Q2

REPORT INFORMATION
  Report Type: 
  Country: None (occurrence: None)
  Receive Date: 20100524
  Receipt Date: 20100511
  Transmission Date: 20101027
  Serious: Yes (Other)
  Sender: FDA-Public Use
  Company Number: B0655077A

PATIENT
  Age: 64 Year
  Sex: Female

DRUGS (3)
  1. FLUCONAZOLE             (FORMULATION UNKNOWN) (GENERIC) (FLUCONAZOLE) [Suspect]
     Indication: CHOROIDITIS
  2. ONDANSETRON HYDROCHLORIDE UNSPECIFIED INJECTION (ONDANSETRON HYDROCHLO [Suspect]
     Dosage: 5 MG INTRAVENOUS
     Route: 042
  3. MICAFUNGIN [Concomitant]

REACTIONS (4)
  - CARDIAC ARREST [None]
  - ELECTROCARDIOGRAM QT PROLONGED [None]
  - NAUSEA [None]
  - TORSADE DE POINTES [None]
